FAERS Safety Report 17890448 (Version 2)
Quarter: 2021Q1

REPORT INFORMATION
  Report Type: Report from Study
  Country: US (occurrence: US)
  Receive Date: 20200612
  Receipt Date: 20210309
  Transmission Date: 20210419
  Serious: Yes (Death)
  Sender: FDA-Public Use
  Company Number: US-PFIZER INC-2020229276

PATIENT

DRUGS (9)
  1. VINCRISTINE SULFATE. [Suspect]
     Active Substance: VINCRISTINE SULFATE
     Indication: BURKITT^S LYMPHOMA
     Dosage: 0.4 MG/M2, CYCLIC, (CIV, DAY 1?4 CYCLIC)
     Route: 041
  2. DOXORUBICIN HCL [Suspect]
     Active Substance: DOXORUBICIN HYDROCHLORIDE
     Indication: BURKITT^S LYMPHOMA
     Dosage: 10 MG/M2, CYCLIC, (CIV, DAY 1?4)
     Route: 041
  3. METHOTREXATE. [Concomitant]
     Active Substance: METHOTREXATE
     Indication: PROPHYLAXIS
     Dosage: CYCLIC (TWICE WEEKLY FOR AT LEAST 4 WEEKS, THEN WEEKLY FOR 6 WEEKS, AND THEN MONTHLY FOR 6 MONTHS)
     Route: 037
  4. ALLOPURINOL. [Concomitant]
     Active Substance: ALLOPURINOL
     Indication: PROPHYLAXIS
  5. CYCLOPHOSPHAMIDE. [Suspect]
     Active Substance: CYCLOPHOSPHAMIDE
     Indication: BURKITT^S LYMPHOMA
     Dosage: 750 MG/M2, CYCLIC (DAY 5)
     Route: 042
  6. ETOPOSIDE. [Suspect]
     Active Substance: ETOPOSIDE
     Indication: BURKITT^S LYMPHOMA
     Dosage: 50 MG/M2, CYCLIC, (CIV, DAY 1?4 CYCLIC)
     Route: 041
  7. RITUXIMAB. [Suspect]
     Active Substance: RITUXIMAB
     Indication: BURKITT^S LYMPHOMA
     Dosage: 375 MG/M2, CYCLIC (DAY 1)
     Route: 042
  8. PREDNISONE. [Suspect]
     Active Substance: PREDNISONE
     Indication: BURKITT^S LYMPHOMA
     Dosage: 60 MG/M2, CYCLIC (DAYS 1?5) TWICE DAILY
     Route: 048
  9. NEUPOGEN [Concomitant]
     Active Substance: FILGRASTIM
     Indication: PROPHYLAXIS
     Dosage: 480 UG, CYCLIC (DAY 6)
     Route: 058

REACTIONS (1)
  - Myocardial infarction [Fatal]
